FAERS Safety Report 7264819-4 (Version None)
Quarter: 2011Q1

REPORT INFORMATION
  Report Type: 
  Country: None (occurrence: None)
  Receive Date: 20110131
  Receipt Date: 20110120
  Transmission Date: 20110831
  Serious: Yes (Hospitalization)
  Sender: FDA-Public Use
  Company Number: US-BRISTOL-MYERS SQUIBB COMPANY-15503055

PATIENT
  Age: 86 Year
  Sex: Female

DRUGS (3)
  1. CYCLOPHOSPHAMIDE [Suspect]
     Indication: CHRONIC LYMPHOCYTIC LEUKAEMIA
     Dosage: CYCLE 2 DAY 4
     Route: 042
     Dates: start: 20100930
  2. FLUDARA [Suspect]
     Indication: CHRONIC LYMPHOCYTIC LEUKAEMIA
     Dosage: CYCLE 1 DAY 1,2,3
     Route: 042
     Dates: start: 20100902, end: 20100930
  3. RITUXIMAB [Suspect]
     Indication: CHRONIC LYMPHOCYTIC LEUKAEMIA
     Dosage: CYCLE 2,DAY 1
     Route: 042
     Dates: start: 20100927

REACTIONS (11)
  - PANCYTOPENIA [None]
  - FATIGUE [None]
  - HYPOPHAGIA [None]
  - GASTROINTESTINAL FUNGAL INFECTION [None]
  - DECREASED APPETITE [None]
  - FAILURE TO THRIVE [None]
  - MUCOSAL INFLAMMATION [None]
  - ABDOMINAL PAIN UPPER [None]
  - NEOPLASM MALIGNANT [None]
  - DYSPHAGIA [None]
  - GASTROINTESTINAL VIRAL INFECTION [None]
